FAERS Safety Report 6748014-0 (Version None)
Quarter: 2010Q2

REPORT INFORMATION
  Report Type: 
  Country: None (occurrence: None)
  Receive Date: 20100529
  Receipt Date: 20100524
  Transmission Date: 20101027
  Serious: Yes (Other)
  Sender: FDA-Public Use
  Company Number: US-ABBOTT-10P-163-0646896-00

PATIENT
  Sex: Female
  Weight: 99.88 kg

DRUGS (1)
  1. ZEMPLAR [Suspect]
     Indication: RENAL IMPAIRMENT
     Dosage: UNKNOWN

REACTIONS (4)
  - DYSPNOEA [None]
  - LIP SWELLING [None]
  - PHARYNGEAL OEDEMA [None]
  - RASH GENERALISED [None]
